FAERS Safety Report 9570891 (Version 1)
Quarter: 2013Q3

REPORT INFORMATION
  Report Type: Spontaneous
  Country: US (occurrence: None)
  Receive Date: 20130927
  Receipt Date: 20130927
  Transmission Date: 20140515
  Serious: Yes (Death)
  Sender: FDA-Public Use
  Company Number: None

PATIENT
  Age: 60 Year
  Sex: Male
  Weight: 150.9 kg

DRUGS (6)
  1. REMICADE [Suspect]
     Indication: PSORIATIC ARTHROPATHY
     Route: 042
     Dates: start: 20091030, end: 20130405
  2. REMICADE [Concomitant]
  3. METHOTREXATE [Concomitant]
  4. STATIN [Concomitant]
  5. TOLVAPTAN [Concomitant]
  6. PANCYTOPENIA [Concomitant]

REACTIONS (18)
  - Pyrexia [None]
  - Fatigue [None]
  - Cough [None]
  - Headache [None]
  - Malaise [None]
  - Nausea [None]
  - Vomiting [None]
  - Diarrhoea [None]
  - Hepatic steatosis [None]
  - Cholelithiasis [None]
  - Lymphadenopathy mediastinal [None]
  - No therapeutic response [None]
  - Septic shock [None]
  - Hepatitis [None]
  - Bronchopulmonary aspergillosis [None]
  - Multi-organ failure [None]
  - Hypertension [None]
  - Renal failure acute [None]
